FAERS Safety Report 19423551 (Version 1)
Quarter: 2021Q2

REPORT INFORMATION
  Report Type: Spontaneous
  Country: US (occurrence: US)
  Receive Date: 20210616
  Receipt Date: 20210616
  Transmission Date: 20210717
  Serious: No
  Sender: FDA-Public Use
  Company Number: US-ELI_LILLY_AND_COMPANY-US202105009993

PATIENT
  Age: 67 Year
  Sex: Male

DRUGS (4)
  1. BASAGLAR [Suspect]
     Active Substance: INSULIN GLARGINE
     Dosage: 15 U, DAILY
     Route: 058
  2. BASAGLAR [Suspect]
     Active Substance: INSULIN GLARGINE
     Indication: BLOOD GLUCOSE ABNORMAL
     Dosage: 15 U, DAILY
     Route: 058
  3. TRULICITY [Concomitant]
     Active Substance: DULAGLUTIDE
     Indication: BLOOD GLUCOSE ABNORMAL
     Dosage: 1.5 MG, WEEKLY (1/W)
  4. GLYBURIDE. [Concomitant]
     Active Substance: GLYBURIDE
     Indication: BLOOD GLUCOSE ABNORMAL
     Dosage: 0.5 MG, DAILY

REACTIONS (1)
  - Accidental underdose [Unknown]

NARRATIVE: CASE EVENT DATE: 20210517
